FAERS Safety Report 9078347 (Version 1)
Quarter: 2013Q1

REPORT INFORMATION
  Report Type: Spontaneous
  Country: JP (occurrence: JP)
  Receive Date: 20130130
  Receipt Date: 20130130
  Transmission Date: 20140127
  Serious: Yes (Hospitalization)
  Sender: FDA-Public Use
  Company Number: JP-TEVA-382431ISR

PATIENT
  Age: 1 Decade
  Sex: Female
  Weight: 10 kg

DRUGS (5)
  1. CEFTRIAXONE [Suspect]
     Indication: UPPER RESPIRATORY TRACT INFLAMMATION
     Dosage: 500 MILLIGRAM DAILY;
     Route: 042
  2. PANIPENEM, BETAMIPRON [Concomitant]
     Route: 065
  3. ALBUMIN HUMAN [Concomitant]
     Route: 065
  4. PARACETAMOL [Concomitant]
     Route: 065
  5. CEFCAPENE PIVOXIL [Concomitant]
     Route: 065

REACTIONS (1)
  - Tubulointerstitial nephritis [Recovered/Resolved with Sequelae]
